FAERS Safety Report 11182281 (Version 2)
Quarter: 2015Q3

REPORT INFORMATION
  Report Type: Spontaneous
  Country: US (occurrence: US)
  Receive Date: 20150611
  Receipt Date: 20150914
  Transmission Date: 20151125
  Serious: No
  Sender: FDA-Public Use
  Company Number: US-ASTELLAS-2015US009225

PATIENT
  Age: 81 Year
  Sex: Male

DRUGS (1)
  1. XTANDI [Suspect]
     Active Substance: ENZALUTAMIDE
     Indication: PROSTATE CANCER
     Dosage: 160 MG (40 MG X 4 CAPSULES), ONCE DAILY
     Route: 048
     Dates: start: 201502

REACTIONS (8)
  - Vision blurred [Unknown]
  - Productive cough [Unknown]
  - Pulmonary congestion [Unknown]
  - Fatigue [Unknown]
  - Back pain [Unknown]
  - Pain in extremity [Unknown]
  - Fatigue [Recovering/Resolving]
  - Adverse event [Unknown]

NARRATIVE: CASE EVENT DATE: 20150317
